FAERS Safety Report 12626406 (Version 2)
Quarter: 2016Q3

REPORT INFORMATION
  Report Type: Report from Study
  Country: US (occurrence: US)
  Receive Date: 20160805
  Receipt Date: 20160816
  Transmission Date: 20161109
  Serious: Yes (Hospitalization)
  Sender: FDA-Public Use
  Company Number: US-MALLINCKRODT-T201603372

PATIENT
  Age: 64 Year
  Sex: Female

DRUGS (1)
  1. REPOSITORY CORTICOTROPIN INJECTION [Suspect]
     Active Substance: CORTICOTROPIN
     Indication: DERMATOMYOSITIS
     Dosage: 80 UNITS TWICE WKLY
     Route: 030
     Dates: start: 20160415, end: 20160805

REACTIONS (6)
  - Alopecia [Not Recovered/Not Resolved]
  - Hypotension [Not Recovered/Not Resolved]
  - Weight decreased [Not Recovered/Not Resolved]
  - Fall [Recovering/Resolving]
  - Blood pressure increased [Not Recovered/Not Resolved]
  - Hyponatraemic syndrome [Not Recovered/Not Resolved]

NARRATIVE: CASE EVENT DATE: 20160726
